FAERS Safety Report 9197231 (Version 1)
Quarter: 2013Q1

REPORT INFORMATION
  Report Type: Spontaneous
  Country: US (occurrence: None)
  Receive Date: 20120709
  Receipt Date: 20120709
  Transmission Date: 20140127
  Serious: No
  Sender: FDA-Public Use
  Company Number: 2012HGS-003566

PATIENT
  Age: 30 Year
  Sex: Female
  Weight: 72.58 kg

DRUGS (5)
  1. BENLYSTA [Suspect]
     Indication: SYSTEMIC LUPUS ERYTHEMATOSUS
     Dosage: 1 IN 28 D
     Route: 041
     Dates: start: 20120411
  2. PLAQUENIL (HYDROXYCHLOROQUINE PHOSPHATE) (HYDROXYCHLOROQUINE PHOSPHATE) [Concomitant]
  3. NAPROXEN (NAPROXEN) (NAPROXEN) [Concomitant]
  4. CELEXA (CITALOPRAM HYDROBROMIDE ) (CITALOPRAM HYDROBROMIDE) [Concomitant]
  5. ASPIRIN (ACETYLSALICYLIC ACID) (ACETYLSALICYLIC ACID) [Concomitant]

REACTIONS (4)
  - Night sweats [None]
  - Hunger [None]
  - Insomnia [None]
  - Anxiety [None]
